FAERS Safety Report 23947086 (Version 2)
Quarter: 2024Q3

REPORT INFORMATION
  Report Type: Spontaneous
  Country: ES (occurrence: ES)
  Receive Date: 20240606
  Receipt Date: 20240808
  Transmission Date: 20241016
  Serious: Yes (Other)
  Sender: JOHNSON AND JOHNSON
  Company Number: ES-JNJFOC-20240581496

PATIENT
  Sex: Male

DRUGS (3)
  1. STELARA [Suspect]
     Active Substance: USTEKINUMAB
     Indication: Crohn^s disease
     Route: 058
     Dates: end: 202211
  2. STELARA [Suspect]
     Active Substance: USTEKINUMAB
     Route: 058
     Dates: end: 202003
  3. STELARA [Suspect]
     Active Substance: USTEKINUMAB
     Route: 058
     Dates: start: 202304

REACTIONS (6)
  - Paraplegia [Unknown]
  - Myalgia [Unknown]
  - Muscle atrophy [Not Recovered/Not Resolved]
  - Trigger points [Not Recovered/Not Resolved]
  - Muscle rigidity [Unknown]
  - Sensory loss [Unknown]

NARRATIVE: CASE EVENT DATE: 20230801
